FAERS Safety Report 5276343-9 (Version None)
Quarter: 2007Q1

REPORT INFORMATION
  Report Type: 
  Country: None (occurrence: None)
  Receive Date: 20070326
  Receipt Date: 20070314
  Transmission Date: 20070707
  Serious: Yes (Other)
  Sender: FDA-Public Use
  Company Number: JP-PFIZER INC-2007020766

PATIENT

DRUGS (1)
  1. PROVERA [Suspect]
     Route: 048

REACTIONS (1)
  - MUSCLE ATROPHY [None]
